FAERS Safety Report 4321863-4 (Version None)
Quarter: 2004Q1

REPORT INFORMATION
  Report Type: 
  Country: None (occurrence: None)
  Receive Date: 20040322
  Receipt Date: 20031210
  Transmission Date: 20041129
  Serious: No
  Sender: FDA-Public Use
  Company Number: A-US2003-03986

PATIENT
  Age: 71 Year
  Sex: Female

DRUGS (9)
  1. TRACLEER [Suspect]
     Indication: PULMONARY HYPERTENSION
     Dosage: 62.5 MG, BID, ORAL
     Route: 048
  2. TIAZAC [Concomitant]
  3. CLARITIN [Concomitant]
  4. DICLOFENAC SODIUM [Concomitant]
  5. PROTONIX [Concomitant]
  6. LOTENSIN [Concomitant]
  7. LOZOL [Concomitant]
  8. PROCRIT (ERYTHROPOIETIN) [Concomitant]
  9. EVISTA [Concomitant]

REACTIONS (1)
  - HYPERTROPHY BREAST [None]
